FAERS Safety Report 9374698 (Version 1)
Quarter: 2013Q2

REPORT INFORMATION
  Report Type: Report from Study
  Country: DE (occurrence: DE)
  Receive Date: 20130628
  Receipt Date: 20130628
  Transmission Date: 20140414
  Serious: Yes (Hospitalization)
  Sender: FDA-Public Use
  Company Number: DE-PFIZER INC-2013156812

PATIENT
  Age: 74 Year
  Sex: Female
  Weight: 85 kg

DRUGS (17)
  1. EXEMESTANE [Suspect]
     Indication: BREAST CANCER METASTATIC
     Dosage: 25 MG, 1X/DAY
     Route: 048
     Dates: start: 20130306
  2. AFINITOR [Suspect]
     Indication: BREAST CANCER METASTATIC
     Dosage: 10 MG, 1X/DAY
     Route: 048
     Dates: start: 20130306, end: 20130512
  3. AFINITOR [Suspect]
     Dosage: 5 MG, 1X/DAY
     Route: 048
     Dates: start: 20130604
  4. EUTHYROX [Concomitant]
     Dosage: UNK
     Dates: start: 20100808
  5. SIMVASTATIN [Concomitant]
     Dosage: UNK
     Dates: start: 20110909
  6. CARMEN [Concomitant]
     Dosage: UNK
     Dates: start: 20130513
  7. VELMETIA [Concomitant]
     Dosage: 50/1000MG
     Dates: start: 20110301
  8. DELIX [Concomitant]
     Dosage: UNK
     Dates: start: 20130513
  9. ACTRAPID HUMAN [Concomitant]
     Dosage: UNK
     Dates: start: 20130412
  10. GLIMEPIRIDE [Concomitant]
     Dosage: UNK
     Dates: start: 20110909, end: 20130411
  11. ORTHOMOL [Concomitant]
     Dosage: UNK
     Dates: start: 20110909
  12. FERRO ^SANOL^ [Concomitant]
     Dosage: UNK
     Dates: start: 20110909
  13. CALCIGEN D [Concomitant]
     Dosage: UNK
     Dates: start: 20130305
  14. BONDRONAT [Concomitant]
     Dosage: UNK
     Dates: start: 20090801
  15. CETEBE [Concomitant]
     Dosage: UNK
     Dates: start: 20130305
  16. NEUROTRAT S FORTE [Concomitant]
     Dosage: UNK
     Dates: start: 20090401
  17. DEKRISTOL [Concomitant]
     Dosage: UNK
     Dates: start: 20130305

REACTIONS (8)
  - Angioedema [Recovered/Resolved with Sequelae]
  - General physical health deterioration [Recovered/Resolved]
  - C-reactive protein increased [Recovered/Resolved with Sequelae]
  - Diarrhoea [Recovered/Resolved]
  - Pyrexia [Recovered/Resolved]
  - Blood glucose increased [Recovered/Resolved with Sequelae]
  - Swollen tongue [Recovered/Resolved with Sequelae]
  - Stomatitis [Not Recovered/Not Resolved]
